FAERS Safety Report 6298249-9 (Version None)
Quarter: 2009Q3

REPORT INFORMATION
  Report Type: 
  Country: None (occurrence: None)
  Receive Date: 20090805
  Receipt Date: 20090729
  Transmission Date: 20100115
  Serious: Yes (Death, Hospitalization)
  Sender: FDA-Public Use
  Company Number: GB-CELGENEUS-167-50794-09072094

PATIENT
  Age: 81 Year
  Sex: Male

DRUGS (1)
  1. VIDAZA [Suspect]
     Indication: DRUG USE FOR UNKNOWN INDICATION
     Route: 050

REACTIONS (4)
  - DEATH [None]
  - NEUTROPENIA [None]
  - PYREXIA [None]
  - RHABDOMYOLYSIS [None]
